FAERS Safety Report 21232142 (Version 1)
Quarter: 2022Q3

REPORT INFORMATION
  Report Type: Report from Study
  Country: US (occurrence: None)
  Receive Date: 20220819
  Receipt Date: 20220819
  Transmission Date: 20221027
  Serious: Yes (Death)
  Sender: FDA-Public Use
  Company Number: 2022A287799

PATIENT
  Sex: Male
  Weight: 74 kg

DRUGS (10)
  1. CALQUENCE [Suspect]
     Active Substance: ACALABRUTINIB
     Indication: Chronic lymphocytic leukaemia
     Route: 048
  2. ABIRATERONE [Concomitant]
     Active Substance: ABIRATERONE
  3. ADALAT CC [Concomitant]
     Active Substance: NIFEDIPINE
  4. FAMOTIDINE [Concomitant]
     Active Substance: FAMOTIDINE
  5. FINASTERIDE [Concomitant]
     Active Substance: FINASTERIDE
  6. METFORMIN [Concomitant]
     Active Substance: METFORMIN HYDROCHLORIDE
  7. MOBIC [Concomitant]
     Active Substance: MELOXICAM
  8. PREDNISONE [Concomitant]
     Active Substance: PREDNISONE
  9. TAMSULOSIN [Concomitant]
     Active Substance: TAMSULOSIN
  10. TELMISARTAN [Concomitant]
     Active Substance: TELMISARTAN

REACTIONS (1)
  - Death [Fatal]
